FAERS Safety Report 9865304 (Version 2)
Quarter: 2014Q1

REPORT INFORMATION
  Report Type: Spontaneous
  Country: US (occurrence: US)
  Receive Date: 20140203
  Receipt Date: 20140203
  Transmission Date: 20141002
  Serious: No
  Sender: FDA-Public Use
  Company Number: US-ALLERGAN-1301541US

PATIENT
  Age: 59 Year
  Sex: Male

DRUGS (10)
  1. RESTASIS [Suspect]
     Indication: DRY EYE
     Dosage: 2 GTT, BID
     Route: 047
     Dates: start: 201208
  2. VALTREX [Concomitant]
     Indication: ANTIVIRAL PROPHYLAXIS
     Dosage: 500 MG, BID
     Route: 048
     Dates: start: 201201
  3. PILOCARPINE [Concomitant]
     Indication: DRY MOUTH
     Dosage: UNK UNK, QD
     Route: 048
     Dates: start: 201208
  4. PILOCARPINE [Concomitant]
     Indication: DRY EYE
  5. LEVOTHYROXINE [Concomitant]
     Indication: HYPOTHYROIDISM
     Dosage: 112 ?G, QD
     Route: 048
  6. STOOL SOFTENER [Concomitant]
     Indication: LAXATIVE SUPPORTIVE CARE
     Dosage: UNK UNK, PRN
     Route: 048
  7. OTC EYEDROP [Concomitant]
     Indication: EYE LUBRICATION THERAPY
     Dosage: UNK
  8. PRANDIN                            /01393601/ [Concomitant]
     Indication: DIABETES MELLITUS
     Dosage: 2 MG, TID
     Route: 048
     Dates: start: 201201
  9. CEVIMELINE [Concomitant]
     Indication: DRY MOUTH
     Dosage: 30 MG, UNK
     Route: 048
     Dates: start: 201201
  10. NEXIUM                             /01479302/ [Concomitant]
     Indication: GASTROOESOPHAGEAL REFLUX DISEASE
     Dosage: 20 MG, QD
     Route: 048
     Dates: start: 201201

REACTIONS (4)
  - Drug ineffective [Unknown]
  - Eye irritation [Recovered/Resolved]
  - Eye irritation [Unknown]
  - Eye pain [Unknown]
